APPROVED DRUG PRODUCT: PROMETHAZINE
Active Ingredient: PROMETHAZINE HYDROCHLORIDE
Strength: 6.25MG/5ML
Dosage Form/Route: SYRUP;ORAL
Application: A089013 | Product #001
Applicant: HR CENCI LABORATORIES INC
Approved: Sep 20, 1985 | RLD: No | RS: No | Type: DISCN